FAERS Safety Report 4441826-8 (Version None)
Quarter: 2004Q3

REPORT INFORMATION
  Report Type: 
  Country: None (occurrence: None)
  Receive Date: 20040901
  Receipt Date: 20040817
  Transmission Date: 20050211
  Serious: Yes (Life-Threatening, Hospitalization)
  Sender: FDA-Public Use
  Company Number: 2004057215

PATIENT
  Age: 65 Year

DRUGS (3)
  1. SERTRALINE (SERTRALINE) [Suspect]
     Indication: DEPRESSION
     Dosage: 50 MG (50 MG, 1 IN 1 D), ORAL
     Route: 048
     Dates: start: 20040704, end: 20040721
  2. CHLORDIAZEPOXIDE [Concomitant]
  3. TAMOXIFEN CITRATE [Concomitant]

REACTIONS (1)
  - HYPOKALAEMIA [None]
